FAERS Safety Report 7994313-4 (Version None)
Quarter: 2011Q4

REPORT INFORMATION
  Report Type: 
  Country: None (occurrence: None)
  Receive Date: 20111217
  Receipt Date: 20111217
  Transmission Date: 20120403
  Serious: Yes (Hospitalization)
  Sender: FDA-Public Use
  Company Number: None

PATIENT
  Sex: Male

DRUGS (2)
  1. ENBREL [Suspect]
     Indication: PSORIATIC ARTHROPATHY
     Dosage: 50MG ONCE WEEKLY SUBCUTANEOUS INJECT
     Route: 058
     Dates: start: 20110929, end: 20111120
  2. ENBREL [Suspect]

REACTIONS (1)
  - PULMONARY EMBOLISM [None]
